FAERS Safety Report 7676341-1 (Version None)
Quarter: 2011Q3

REPORT INFORMATION
  Report Type: 
  Country: None (occurrence: None)
  Receive Date: 20110805
  Receipt Date: 20110726
  Transmission Date: 20111222
  Serious: Yes (Hospitalization)
  Sender: FDA-Public Use
  Company Number: 1000022589

PATIENT
  Age: 64 Year
  Sex: Male

DRUGS (3)
  1. MEMANTINE [Suspect]
     Indication: DEMENTIA ALZHEIMER'S TYPE
     Dosage: 20 MG (20 MG, 1 IN 1 D), ORAL
     Route: 048
  2. ARICEPT [Concomitant]
  3. MEMANTINE [Suspect]
     Indication: DEMENTIA ALZHEIMER'S TYPE
     Dosage: DOSE GRADUALLY INCREASED, ORAL
     Route: 048

REACTIONS (1)
  - DECREASED ACTIVITY [None]
